FAERS Safety Report 25378741 (Version 2)
Quarter: 2025Q3

REPORT INFORMATION
  Report Type: Spontaneous
  Country: EU (occurrence: EU)
  Receive Date: 20250530
  Receipt Date: 20250818
  Transmission Date: 20251020
  Serious: Yes (Other)
  Sender: AUROBINDO
  Company Number: EU-ABBVIE-6219795

PATIENT
  Age: 79 Year
  Sex: Male

DRUGS (6)
  1. RIVASTIGMINE [Suspect]
     Active Substance: RIVASTIGMINE
     Indication: Product used for unknown indication
     Dosage: 4.6 MILLIGRAM, ONCE A DAY
     Route: 065
     Dates: start: 20250329, end: 20250403
  2. RIVASTIGMINE [Suspect]
     Active Substance: RIVASTIGMINE
     Route: 065
     Dates: start: 202504, end: 20250406
  3. RIVASTIGMINE [Suspect]
     Active Substance: RIVASTIGMINE
     Route: 065
     Dates: start: 202504, end: 202504
  4. FOSCARBIDOPA\FOSLEVODOPA [Suspect]
     Active Substance: FOSCARBIDOPA\FOSLEVODOPA
     Indication: Parkinson^s disease
     Route: 058
     Dates: start: 20241023
  5. FOSCARBIDOPA\FOSLEVODOPA [Suspect]
     Active Substance: FOSCARBIDOPA\FOSLEVODOPA
     Route: 058
     Dates: start: 20250430
  6. XADAGO [Concomitant]
     Active Substance: SAFINAMIDE MESYLATE
     Indication: Product used for unknown indication
     Route: 065

REACTIONS (8)
  - Hallucination [Recovered/Resolved]
  - Condition aggravated [Unknown]
  - Insomnia [Unknown]
  - Gait inability [Recovered/Resolved]
  - Psychomotor skills impaired [Recovered/Resolved]
  - Memory impairment [Recovered/Resolved]
  - Mobility decreased [Recovered/Resolved]
  - Therapeutic product effect incomplete [Unknown]

NARRATIVE: CASE EVENT DATE: 20250329
